FAERS Safety Report 8516970-6 (Version None)
Quarter: 2012Q3

REPORT INFORMATION
  Report Type: 
  Country: None (occurrence: None)
  Receive Date: 20120718
  Receipt Date: 20120712
  Transmission Date: 20120928
  Serious: No
  Sender: FDA-Public Use
  Company Number: US-PFIZER INC-2012169237

PATIENT
  Sex: Male
  Weight: 11.338 kg

DRUGS (1)
  1. VFEND [Suspect]
     Indication: BRONCHOPULMONARY ASPERGILLOSIS
     Dosage: 100 MG, 2X/DAY
     Dates: start: 20120401, end: 20120601

REACTIONS (3)
  - SKIN REACTION [None]
  - HEPATIC FUNCTION ABNORMAL [None]
  - RASH [None]
